FAERS Safety Report 10222368 (Version 1)
Quarter: 2014Q2

REPORT INFORMATION
  Report Type: Spontaneous
  Country: US (occurrence: US)
  Receive Date: 20140606
  Receipt Date: 20140606
  Transmission Date: 20141212
  Serious: Yes (Hospitalization)
  Sender: FDA-Public Use
  Company Number: US-JNJFOC-20140516885

PATIENT
  Age: 38 Year
  Sex: Male

DRUGS (3)
  1. TOPIRAMATE [Suspect]
     Indication: PRODUCT USED FOR UNKNOWN INDICATION
     Route: 065
  2. RISPERIDONE [Suspect]
     Indication: PRODUCT USED FOR UNKNOWN INDICATION
     Route: 065
  3. CARBAMAZEPINE [Suspect]
     Indication: PRODUCT USED FOR UNKNOWN INDICATION
     Route: 065

REACTIONS (8)
  - Disseminated intravascular coagulation [Unknown]
  - Gastric perforation [Unknown]
  - Heat stroke [Unknown]
  - Renal failure acute [Unknown]
  - Liver injury [Unknown]
  - Hypotension [Unknown]
  - Ischaemic gastritis [Unknown]
  - Upper gastrointestinal haemorrhage [Unknown]
